FAERS Safety Report 4301679-5 (Version None)
Quarter: 2004Q1

REPORT INFORMATION
  Report Type: 
  Country: None (occurrence: None)
  Receive Date: 20040218
  Receipt Date: 20031111
  Transmission Date: 20041129
  Serious: Yes (Disabling, Other)
  Sender: FDA-Public Use
  Company Number: 2002-07-2423

PATIENT
  Age: 48 Year
  Sex: Male

DRUGS (3)
  1. PEG-INTRON [Suspect]
     Indication: HEPATITIS C
     Dosage: 120 MCG QW SUBCUTANEOUS
     Route: 058
     Dates: start: 20020503, end: 20020730
  2. REBETOL [Suspect]
     Indication: HEPATITIS C
     Dosage: 600 MG BID SUBCUTANEOUS
     Route: 058
     Dates: start: 20020503, end: 20020730
  3. ATIVAN [Concomitant]

REACTIONS (4)
  - HEADACHE [None]
  - PAPILLOEDEMA [None]
  - VASCULITIS [None]
  - VISUAL ACUITY REDUCED [None]
